FAERS Safety Report 4713346-4 (Version None)
Quarter: 2005Q3

REPORT INFORMATION
  Report Type: 
  Country: None (occurrence: None)
  Receive Date: 20050713
  Receipt Date: 20050708
  Transmission Date: 20060218
  Serious: Yes (Hospitalization)
  Sender: FDA-Public Use
  Company Number: FR-GLAXOSMITHKLINE-B0387345A

PATIENT
  Age: 33 Year
  Sex: Female

DRUGS (1)
  1. CLAMOXYL [Suspect]
     Indication: LARYNGITIS
     Route: 048
     Dates: start: 20050501, end: 20050510

REACTIONS (3)
  - PRURITUS [None]
  - RASH MACULO-PAPULAR [None]
  - URTICARIA [None]
